FAERS Safety Report 23827656 (Version 1)
Quarter: 2024Q2

REPORT INFORMATION
  Report Type: Spontaneous
  Country: CA (occurrence: CA)
  Receive Date: 20240507
  Receipt Date: 20240507
  Transmission Date: 20240715
  Serious: Yes (Hospitalization)
  Sender: FDA-Public Use
  Company Number: CA-BAUSCH-BL-2024-007179

PATIENT
  Age: 59 Year
  Sex: Female

DRUGS (8)
  1. DEXAMETHASONE [Suspect]
     Active Substance: DEXAMETHASONE
     Indication: Cancer pain
     Route: 065
  2. DIAZEPAM\MAGALDRATE\OXYPHENONIUM BROMIDE [Suspect]
     Active Substance: DIAZEPAM\MAGALDRATE\OXYPHENONIUM BROMIDE
     Indication: Cancer pain
     Route: 065
  3. GABAPENTIN [Suspect]
     Active Substance: GABAPENTIN
     Indication: Cancer pain
     Route: 065
  4. GABAPENTIN [Suspect]
     Active Substance: GABAPENTIN
     Route: 065
  5. METHADONE HYDROCHLORIDE [Suspect]
     Active Substance: METHADONE HYDROCHLORIDE
     Indication: Cancer pain
     Route: 065
  6. METHADONE HYDROCHLORIDE [Suspect]
     Active Substance: METHADONE HYDROCHLORIDE
     Route: 065
  7. METHADONE HYDROCHLORIDE [Suspect]
     Active Substance: METHADONE HYDROCHLORIDE
     Route: 065
  8. MORPHINE SULFATE\TACRINE HYDROCHLORIDE [Suspect]
     Active Substance: MORPHINE SULFATE\TACRINE HYDROCHLORIDE
     Indication: Cancer pain
     Route: 065

REACTIONS (3)
  - Drug ineffective [Unknown]
  - No adverse event [Unknown]
  - Off label use [Unknown]
